FAERS Safety Report 5639780-6 (Version None)
Quarter: 2008Q1

REPORT INFORMATION
  Report Type: 
  Country: None (occurrence: None)
  Receive Date: 20080227
  Receipt Date: 20080222
  Transmission Date: 20080703
  Serious: Yes (Other)
  Sender: FDA-Public Use
  Company Number: US-BRISTOL-MYERS SQUIBB COMPANY-14088520

PATIENT

DRUGS (1)
  1. ERBITUX [Suspect]

REACTIONS (1)
  - NEPHROLITHIASIS [None]
